FAERS Safety Report 10663901 (Version 1)
Quarter: 2014Q4

REPORT INFORMATION
  Report Type: Spontaneous
  Country: US (occurrence: None)
  Receive Date: 20141218
  Receipt Date: 20141218
  Transmission Date: 20150529
  Serious: No
  Sender: FDA-Public Use
  Company Number: None

PATIENT
  Age: 41 Year
  Sex: Female
  Weight: 106.14 kg

DRUGS (1)
  1. BRINTELLIX [Suspect]
     Active Substance: VORTIOXETINE HYDROBROMIDE
     Indication: ANXIETY
     Dosage: 10  THEN 5 MG  ONCE DAILY BY MOUTH
     Route: 048
     Dates: start: 20141020, end: 20141209

REACTIONS (5)
  - Anger [None]
  - Arthralgia [None]
  - Affective disorder [None]
  - Anxiety [None]
  - Feeling abnormal [None]
